FAERS Safety Report 5460125-9 (Version None)
Quarter: 2007Q3

REPORT INFORMATION
  Report Type: 
  Country: None (occurrence: None)
  Receive Date: 20070919
  Receipt Date: 20070622
  Transmission Date: 20080115
  Serious: No
  Sender: FDA-Public Use
  Company Number: US-ASTRAZENECA-2007UW12414

PATIENT
  Age: 564 Month
  Sex: Female
  Weight: 72.6 kg

DRUGS (3)
  1. SEROQUEL [Suspect]
     Indication: INSOMNIA
     Dosage: ONE AND ONE HALF TABLETS
     Route: 048
     Dates: start: 20070411, end: 20070501
  2. SEROQUEL [Suspect]
     Route: 048
  3. SYNTHROID [Concomitant]

REACTIONS (7)
  - CHILLS [None]
  - DYSKINESIA [None]
  - MOBILITY DECREASED [None]
  - NAUSEA [None]
  - PYREXIA [None]
  - STOMACH DISCOMFORT [None]
  - TREMOR [None]
